FAERS Safety Report 5128205-5 (Version None)
Quarter: 2006Q4

REPORT INFORMATION
  Report Type: 
  Country: None (occurrence: None)
  Receive Date: 20061011
  Receipt Date: 20060926
  Transmission Date: 20070319
  Serious: Yes (Other)
  Sender: FDA-Public Use
  Company Number: S06-FRA-04141-01

PATIENT
  Age: 23 Year
  Sex: Female

DRUGS (1)
  1. MONUROL [Suspect]
     Indication: URINARY TRACT INFECTION
     Dosage: 3 G ONCE PO
     Route: 048
     Dates: start: 20060921, end: 20060921

REACTIONS (3)
  - ARTHRITIS [None]
  - VASCULAR PURPURA [None]
  - WALKING AID USER [None]
